FAERS Safety Report 7043046-X (Version None)
Quarter: 2010Q4

REPORT INFORMATION
  Report Type: 
  Country: None (occurrence: None)
  Receive Date: 20101013
  Receipt Date: 20101006
  Transmission Date: 20110411
  Serious: Yes (Other)
  Sender: FDA-Public Use
  Company Number: US-MERCK-1009USA03790

PATIENT
  Age: 87 Year
  Sex: Female

DRUGS (2)
  1. COZAAR [Suspect]
     Indication: BLOOD PRESSURE
     Route: 048
     Dates: end: 20100901
  2. COZAAR [Suspect]
     Route: 048

REACTIONS (6)
  - BLOOD PRESSURE ABNORMAL [None]
  - FEELING ABNORMAL [None]
  - INSOMNIA [None]
  - OVARIAN CANCER [None]
  - RASH PRURITIC [None]
  - WRONG TECHNIQUE IN DRUG USAGE PROCESS [None]
